FAERS Safety Report 20862642 (Version 1)
Quarter: 2022Q2

REPORT INFORMATION
  Report Type: Spontaneous
  Country: AU (occurrence: AU)
  Receive Date: 20220523
  Receipt Date: 20220523
  Transmission Date: 20220721
  Serious: Yes (Other)
  Sender: FDA-Public Use
  Company Number: AU-Gedeon Richter Plc.-2022_GR_003398

PATIENT
  Sex: Male

DRUGS (1)
  1. CARIPRAZINE HYDROCHLORIDE [Suspect]
     Active Substance: CARIPRAZINE HYDROCHLORIDE
     Indication: Product used for unknown indication
     Dosage: 3 MG, BID

REACTIONS (5)
  - Erectile dysfunction [Unknown]
  - Mental fatigue [Unknown]
  - Dyspnoea exertional [Unknown]
  - Product use issue [Unknown]
  - Fatigue [Unknown]
